FAERS Safety Report 5980668-9 (Version None)
Quarter: 2008Q4

REPORT INFORMATION
  Report Type: 
  Country: None (occurrence: None)
  Receive Date: 20081205
  Receipt Date: 20080317
  Transmission Date: 20090506
  Serious: No
  Sender: FDA-Public Use
  Company Number: A0713399A

PATIENT
  Age: 45 Year
  Sex: Male

DRUGS (2)
  1. COMMIT [Suspect]
  2. NICORETTE [Suspect]
     Indication: SMOKING CESSATION THERAPY
     Route: 002

REACTIONS (1)
  - ABDOMINAL DISCOMFORT [None]
